FAERS Safety Report 18404061 (Version 2)
Quarter: 2020Q4

REPORT INFORMATION
  Report Type: Other
  Country: GR (occurrence: GR)
  Receive Date: 20201020
  Receipt Date: 20201021
  Transmission Date: 20210114
  Serious: Yes (Other)
  Sender: FDA-Public Use
  Company Number: GR-ROCHE-2691966

PATIENT
  Age: 56 Year
  Sex: Female

DRUGS (3)
  1. RITUXIMAB. [Suspect]
     Active Substance: RITUXIMAB
     Indication: NEUROMYELITIS OPTICA SPECTRUM DISORDER
     Route: 065
  2. CYCLOPHOSPHAMIDE. [Concomitant]
     Active Substance: CYCLOPHOSPHAMIDE
  3. INTERFERON BETA NOS [Concomitant]
     Active Substance: INTERFERON BETA

REACTIONS (5)
  - Demyelination [Unknown]
  - Myelitis transverse [Unknown]
  - Autoimmune demyelinating disease [Unknown]
  - Off label use [Unknown]
  - Intentional product use issue [Unknown]
